APPROVED DRUG PRODUCT: GRANISETRON HYDROCHLORIDE
Active Ingredient: GRANISETRON HYDROCHLORIDE
Strength: EQ 2MG BASE/10ML
Dosage Form/Route: SOLUTION;ORAL
Application: A219282 | Product #001
Applicant: INTRA-SANA LABORATORIES LLC
Approved: Mar 17, 2025 | RLD: No | RS: No | Type: RX